FAERS Safety Report 21578708 (Version 1)
Quarter: 2022Q4

REPORT INFORMATION
  Report Type: Report from Study
  Country: US (occurrence: US)
  Receive Date: 20221110
  Receipt Date: 20221110
  Transmission Date: 20230113
  Serious: Yes (Other)
  Sender: FDA-Public Use
  Company Number: US-TAKEDA-2022TUS083092

PATIENT
  Sex: Male

DRUGS (1)
  1. VEDOLIZUMAB [Suspect]
     Active Substance: VEDOLIZUMAB
     Indication: Crohn^s disease
     Dosage: 300 MILLIGRAM
     Route: 042

REACTIONS (9)
  - Haematochezia [Unknown]
  - Melaena [Unknown]
  - Pseudopolyposis [Unknown]
  - Large intestine polyp [Unknown]
  - Haemorrhoids [Unknown]
  - Prostatomegaly [Unknown]
  - Dysplasia [Unknown]
  - Mucous stools [Unknown]
  - Gastrooesophageal reflux disease [Unknown]
